FAERS Safety Report 21060815 (Version 1)
Quarter: 2022Q3

REPORT INFORMATION
  Report Type: Spontaneous
  Country: FR (occurrence: FR)
  Receive Date: 20220709
  Receipt Date: 20220709
  Transmission Date: 20221026
  Serious: Yes (Other)
  Sender: FDA-Public Use
  Company Number: FR-GILEAD-2022-0581860

PATIENT
  Age: 50 Year
  Sex: Female

DRUGS (15)
  1. DARUNAVIR [Suspect]
     Active Substance: DARUNAVIR
     Indication: HIV-2 infection
     Dosage: UNK, QD, DURATION: 1586 DAYS
     Dates: start: 20070809, end: 20111212
  2. KIVEXA [Suspect]
     Active Substance: ABACAVIR SULFATE\LAMIVUDINE
     Indication: HIV-2 infection
     Dosage: UNK, QD, DURATION: 1571 DAYS
     Dates: start: 20120522, end: 20160909
  3. RITONAVIR [Suspect]
     Active Substance: RITONAVIR
     Indication: HIV-2 infection
     Dosage: UNK, QD, DURATION: 1751 DAYS
     Dates: start: 20070806, end: 20120522
  4. RITONAVIR [Suspect]
     Active Substance: RITONAVIR
     Dosage: UNK, QD, DURATION: 2 MONTHS
     Dates: start: 20120702, end: 201209
  5. EMTRIVA [Suspect]
     Active Substance: EMTRICITABINE
     Indication: HIV-2 infection
     Dosage: 1 DOSAGE FORMS DAILY; UNK, QD, DURATION: 174 DAYS
     Dates: start: 20160909, end: 20170302
  6. EMTRIVA [Suspect]
     Active Substance: EMTRICITABINE
     Dosage: 1 DOSAGE FORMS DAILY; UNK, QD, DURATION: 2156 DAYS
     Dates: start: 20060627, end: 20120522
  7. INVIRASE [Suspect]
     Active Substance: SAQUINAVIR MESYLATE
     Indication: HIV-2 infection
     Dosage: UNK, QD, DURATION: 2 MONTHS
     Dates: start: 20120702, end: 201209
  8. VIREAD [Suspect]
     Active Substance: TENOFOVIR DISOPROXIL FUMARATE
     Indication: Hepatitis B
     Dosage: 1 DOSAGE FORMS DAILY; 1 DOSAGE FORM, QD, DURATION: 3901 DAYS
     Dates: start: 20060627, end: 20170302
  9. VIREAD [Suspect]
     Active Substance: TENOFOVIR DISOPROXIL FUMARATE
     Indication: HIV-2 infection
  10. ISENTRESS [Suspect]
     Active Substance: RALTEGRAVIR POTASSIUM
     Indication: HIV-2 infection
     Dosage: UNK, QD, DURATION: 41 DAYS
     Dates: start: 20120522, end: 20120702
  11. ISENTRESS [Suspect]
     Active Substance: RALTEGRAVIR POTASSIUM
     Dosage: UNK, QD,, DURATION: 1 YEAR
     Dates: start: 201209, end: 20140408
  12. DOLUTEGRAVIR [Suspect]
     Active Substance: DOLUTEGRAVIR
     Indication: HIV-2 infection
     Dosage: UNK, QD, DURATION: 1059 DAYS
     Dates: start: 20140408, end: 20170302
  13. ZOLPIDEM [Concomitant]
     Active Substance: ZOLPIDEM TARTRATE
     Indication: Product used for unknown indication
  14. COTRIMOXAZOLE [Concomitant]
     Active Substance: SULFAMETHOXAZOLE\TRIMETHOPRIM
     Indication: Product used for unknown indication
  15. ESOMEPRAZOLE [Concomitant]
     Active Substance: ESOMEPRAZOLE
     Indication: Product used for unknown indication

REACTIONS (6)
  - Blood HIV RNA increased [Not Recovered/Not Resolved]
  - Hepatitis B DNA increased [Recovered/Resolved]
  - Drug ineffective [Not Recovered/Not Resolved]
  - Genotype drug resistance test positive [Not Recovered/Not Resolved]
  - Pruritus [Unknown]
  - Dyspepsia [Unknown]

NARRATIVE: CASE EVENT DATE: 20111114
